FAERS Safety Report 5412625-5 (Version None)
Quarter: 2007Q3

REPORT INFORMATION
  Report Type: 
  Country: None (occurrence: None)
  Receive Date: 20070813
  Receipt Date: 20070801
  Transmission Date: 20080115
  Serious: Yes (Hospitalization)
  Sender: FDA-Public Use
  Company Number: US-KINGPHARMUSA00001-K200700971

PATIENT

DRUGS (7)
  1. FLORINEF [Suspect]
     Dosage: 200 MCG, QD
     Route: 048
     Dates: end: 20051005
  2. SODIUM BICARBONATE W/POTASSIUM CHLORIDE [Concomitant]
  3. ASPIRIN [Concomitant]
  4. TEMAZEPAM [Concomitant]
  5. CITALOPRAM HYDROBROMIDE [Concomitant]
  6. DOMPERIDONE [Concomitant]
  7. RABEPRAZOLE SODIUM [Concomitant]

REACTIONS (2)
  - HYPOKALAEMIA [None]
  - ORTHOSTATIC HYPOTENSION [None]
